FAERS Safety Report 14154402 (Version 1)
Quarter: 2017Q4

REPORT INFORMATION
  Report Type: Spontaneous
  Country: US (occurrence: US)
  Receive Date: 20171102
  Receipt Date: 20171102
  Transmission Date: 20180321
  Serious: No
  Sender: FDA-Public Use
  Company Number: US-ASTRAZENECA-2017SF06751

PATIENT
  Age: 795 Month
  Sex: Female
  Weight: 78 kg

DRUGS (3)
  1. LANTUS [Concomitant]
     Active Substance: INSULIN GLARGINE
     Indication: DIABETES MELLITUS
     Route: 058
  2. METFORMIN [Concomitant]
     Active Substance: METFORMIN HYDROCHLORIDE
     Indication: DIABETES MELLITUS
     Route: 048
  3. BYDUREON [Suspect]
     Active Substance: EXENATIDE
     Indication: TYPE 2 DIABETES MELLITUS
     Route: 058
     Dates: start: 201709

REACTIONS (11)
  - Injection site pruritus [Recovered/Resolved]
  - Hyperhidrosis [Not Recovered/Not Resolved]
  - Injection site discolouration [Unknown]
  - Injection site rash [Recovered/Resolved]
  - Injection site warmth [Recovered/Resolved]
  - Injection site nodule [Not Recovered/Not Resolved]
  - Fatigue [Unknown]
  - Body height decreased [Unknown]
  - Injection site erythema [Recovered/Resolved]
  - Peau d^orange [Unknown]
  - Weight decreased [Unknown]

NARRATIVE: CASE EVENT DATE: 201709
